FAERS Safety Report 5279527-9 (Version None)
Quarter: 2007Q1

REPORT INFORMATION
  Report Type: 
  Country: None (occurrence: None)
  Receive Date: 20070328
  Receipt Date: 20070321
  Transmission Date: 20070707
  Serious: Yes (Other)
  Sender: FDA-Public Use
  Company Number: DE-PFIZER INC-2007005514

PATIENT
  Sex: Female
  Weight: 74 kg

DRUGS (3)
  1. AROMASIN [Suspect]
     Indication: BREAST CANCER FEMALE
     Dosage: TEXT:1 TABLET; 1 TABLET-FREQ:FREQUENCY: DAILY
     Route: 048
     Dates: start: 20040401, end: 20061129
  2. ZOLADEX [Suspect]
     Dosage: FREQ:INTERVAL: EVERY 28 DAYS
     Route: 058
     Dates: start: 20040401, end: 20061212
  3. OSTAC [Concomitant]
     Route: 048
     Dates: start: 20060401, end: 20061001

REACTIONS (4)
  - ABDOMINAL TENDERNESS [None]
  - BLOOD BILIRUBIN INCREASED [None]
  - FATIGUE [None]
  - TRANSAMINASES INCREASED [None]
